FAERS Safety Report 12502398 (Version 1)
Quarter: 2016Q2

REPORT INFORMATION
  Report Type: Other
  Country: None (occurrence: US)
  Receive Date: 20160627
  Receipt Date: 20160627
  Transmission Date: 20160815
  Serious: Yes (Other)
  Sender: FDA-Public Use
  Company Number: US-GUTHY-RENKER LLC-1054357

PATIENT
  Age: 66 Year
  Sex: Female

DRUGS (3)
  1. LOSARTANHCTZ 100-12.5MG QD OTHER [Concomitant]
  2. AMLODIPINE 10MG QD [Concomitant]
  3. IT COSMETICS BYE BYE FOUNDATION SPF 50+ [Suspect]
     Active Substance: TITANIUM DIOXIDE\ZINC OXIDE
     Indication: PHOTOSENSITIVITY REACTION
     Route: 061
     Dates: start: 20160427, end: 20160513

REACTIONS (1)
  - Eye inflammation [Not Recovered/Not Resolved]

NARRATIVE: CASE EVENT DATE: 20160513
